FAERS Safety Report 24254658 (Version 2)
Quarter: 2024Q4

REPORT INFORMATION
  Report Type: Report from Study
  Country: CA (occurrence: CA)
  Receive Date: 20240827
  Receipt Date: 20241218
  Transmission Date: 20250115
  Serious: Yes (Other)
  Sender: JOHNSON AND JOHNSON
  Company Number: CA-JNJFOC-20240855966

PATIENT
  Age: 8 Decade
  Sex: Male
  Weight: 65.5 kg

DRUGS (2)
  1. REMICADE [Suspect]
     Active Substance: INFLIXIMAB
     Indication: Product used for unknown indication
     Route: 041
  2. REMICADE [Suspect]
     Active Substance: INFLIXIMAB
     Route: 041
     Dates: start: 20191001

REACTIONS (2)
  - Dyspnoea [Unknown]
  - Biopsy [Unknown]

NARRATIVE: CASE EVENT DATE: 20240101
